FAERS Safety Report 10309528 (Version 1)
Quarter: 2014Q3

REPORT INFORMATION
  Report Type: Spontaneous
  Country: NL (occurrence: NL)
  Receive Date: 20140717
  Receipt Date: 20140717
  Transmission Date: 20150326
  Serious: Yes (Death)
  Sender: FDA-Public Use
  Company Number: NL-AMGEN-NLDSP2014052618

PATIENT
  Age: 45 Year
  Sex: Female

DRUGS (1)
  1. ARANESP [Suspect]
     Active Substance: DARBEPOETIN ALFA
     Indication: ANAEMIA
     Dosage: 1 ML(500MCG/ML), Q3MO
     Route: 058
     Dates: start: 20130614, end: 20140708

REACTIONS (1)
  - Death [Fatal]

NARRATIVE: CASE EVENT DATE: 20140708
